FAERS Safety Report 21167698 (Version 2)
Quarter: 2022Q3

REPORT INFORMATION
  Report Type: Spontaneous
  Country: US (occurrence: US)
  Receive Date: 20220803
  Receipt Date: 20220829
  Transmission Date: 20221027
  Serious: No
  Sender: FDA-Public Use
  Company Number: US-ELI_LILLY_AND_COMPANY-US202207006561

PATIENT
  Age: 58 Year

DRUGS (1)
  1. BEBTELOVIMAB [Suspect]
     Active Substance: BEBTELOVIMAB
     Indication: COVID-19
     Dosage: UNK, UNKNOWN
     Route: 065
     Dates: start: 202206

REACTIONS (4)
  - Diarrhoea [Unknown]
  - White blood cell count increased [Unknown]
  - Pyrexia [Unknown]
  - Urine abnormality [Unknown]

NARRATIVE: CASE EVENT DATE: 20220701
